FAERS Safety Report 7022406-7 (Version None)
Quarter: 2010Q3

REPORT INFORMATION
  Report Type: 
  Country: None (occurrence: None)
  Receive Date: 20100930
  Receipt Date: 20100927
  Transmission Date: 20110219
  Serious: Yes (Hospitalization)
  Sender: FDA-Public Use
  Company Number: IN-ROCHE-702908

PATIENT
  Sex: Male

DRUGS (4)
  1. MYCOPHENOLATE MOFETIL [Suspect]
     Route: 065
     Dates: start: 20070517
  2. MYCOPHENOLATE MOFETIL [Suspect]
     Dosage: DOSE REDUCED
     Route: 065
  3. BELATACEPT [Suspect]
     Dosage: FORM AS PER PROTOCOL
     Route: 042
     Dates: start: 20070518
  4. PREDNISOLONE [Suspect]
     Route: 065
     Dates: start: 20070523

REACTIONS (14)
  - BLOOD PRESSURE DECREASED [None]
  - BLOOD SODIUM DECREASED [None]
  - CONVULSION [None]
  - GASTROENTERITIS [None]
  - GASTROENTERITIS CRYPTOSPORIDIAL [None]
  - GRAFT DYSFUNCTION [None]
  - GRAND MAL CONVULSION [None]
  - HAEMATOCRIT DECREASED [None]
  - HAEMOGLOBIN DECREASED [None]
  - HYPOKALAEMIA [None]
  - PNEUMONIA ASPIRATION [None]
  - RED BLOOD CELL COUNT DECREASED [None]
  - URINARY TRACT INFECTION [None]
  - WEIGHT DECREASED [None]
